FAERS Safety Report 12368160 (Version 2)
Quarter: 2016Q2

REPORT INFORMATION
  Report Type: Spontaneous
  Country: US (occurrence: US)
  Receive Date: 20160513
  Receipt Date: 20160601
  Transmission Date: 20160815
  Serious: Yes (Hospitalization, Other)
  Sender: FDA-Public Use
  Company Number: US-NOVOPROD-491596

PATIENT
  Age: 56 Year
  Sex: Male

DRUGS (5)
  1. NOVOLOG [Suspect]
     Active Substance: INSULIN ASPART
     Indication: TYPE 2 DIABETES MELLITUS
     Dosage: 35 U, TID
     Route: 058
     Dates: start: 201103
  2. LANTUS [Concomitant]
     Active Substance: INSULIN GLARGINE
     Indication: TYPE 2 DIABETES MELLITUS
  3. NOVOLOG [Suspect]
     Active Substance: INSULIN ASPART
     Dosage: 22 U, TID
     Route: 058
  4. NOVOLOG [Suspect]
     Active Substance: INSULIN ASPART
     Dosage: 30 U, TID
     Route: 058
     Dates: start: 201103
  5. NOVOLOG [Suspect]
     Active Substance: INSULIN ASPART
     Dosage: 14 U, TID
     Route: 058
     Dates: start: 2016

REACTIONS (11)
  - Neoplasm malignant [Not Recovered/Not Resolved]
  - Haemoglobin decreased [Not Recovered/Not Resolved]
  - Liver injury [Recovered/Resolved]
  - Cholecystitis [Not Recovered/Not Resolved]
  - Cardiac failure congestive [Not Recovered/Not Resolved]
  - Chills [Not Recovered/Not Resolved]
  - Blood glucose increased [Recovered/Resolved]
  - Myocardial infarction [Not Recovered/Not Resolved]
  - Hyperhidrosis [Not Recovered/Not Resolved]
  - Fracture [Not Recovered/Not Resolved]
  - Atrial fibrillation [Not Recovered/Not Resolved]

NARRATIVE: CASE EVENT DATE: 2011
